FAERS Safety Report 5853138-6 (Version None)
Quarter: 2008Q3

REPORT INFORMATION
  Report Type: 
  Country: None (occurrence: None)
  Receive Date: 20080821
  Receipt Date: 20080806
  Transmission Date: 20090109
  Serious: No
  Sender: FDA-Public Use
  Company Number: US-BOEHRINGER INGELHEIM GMBH, GERMANY-2008-BP-11318BP

PATIENT
  Sex: Male
  Weight: 106 kg

DRUGS (8)
  1. MIRAPEX [Suspect]
     Indication: PARKINSON'S DISEASE
     Route: 048
     Dates: start: 20070206, end: 20080711
  2. MIRAPEX [Suspect]
     Route: 048
     Dates: start: 20080711
  3. SINEMET [Concomitant]
     Dates: start: 20070104
  4. ALLOPURINOL [Concomitant]
  5. ZIAC [Concomitant]
  6. AMBIEN [Concomitant]
  7. LEXAPRO [Concomitant]
     Dates: start: 20080505
  8. CITALOPRAM HYDROBROMIDE [Concomitant]
     Dates: start: 20080505

REACTIONS (1)
  - PATHOLOGICAL GAMBLING [None]
